FAERS Safety Report 10820038 (Version 1)
Quarter: 2015Q1

REPORT INFORMATION
  Report Type: Report from Study
  Country: US (occurrence: US)
  Receive Date: 20150218
  Receipt Date: 20150218
  Transmission Date: 20150721
  Serious: No
  Sender: FDA-Public Use
  Company Number: US-ABBVIE-14K-163-1297758-00

PATIENT
  Age: 19 Year
  Sex: Female

DRUGS (2)
  1. HUMIRA [Suspect]
     Active Substance: ADALIMUMAB
     Indication: CROHN^S DISEASE
     Dosage: STARTING AT WEEK FOUR
     Route: 058
     Dates: start: 20140530
  2. UNKNOWN CONTRACEPTIC PILLS [Concomitant]
     Indication: CONTRACEPTION

REACTIONS (2)
  - Disturbance in attention [Unknown]
  - Amnesia [Unknown]

NARRATIVE: CASE EVENT DATE: 201409
